FAERS Safety Report 8096342-1 (Version None)
Quarter: 2012Q1

REPORT INFORMATION
  Report Type: 
  Country: None (occurrence: None)
  Receive Date: 20120131
  Receipt Date: 20120123
  Transmission Date: 20120608
  Serious: Yes (Hospitalization)
  Sender: FDA-Public Use
  Company Number: US-SANOFI-AVENTIS-2012SA005340

PATIENT
  Age: 68 Year
  Sex: Male
  Weight: 80.3 kg

DRUGS (3)
  1. ALL OTHER THERAPEUTIC PRODUCTS [Concomitant]
  2. PLAVIX [Suspect]
     Route: 048
     Dates: start: 20111210, end: 20111222
  3. PLAVIX [Suspect]
     Indication: PERCUTANEOUS CORONARY INTERVENTION
     Route: 048
     Dates: start: 20111209, end: 20111209

REACTIONS (6)
  - DRUG INEFFECTIVE [None]
  - MULTI-ORGAN FAILURE [None]
  - ELECTROCARDIOGRAM ST SEGMENT ELEVATION [None]
  - THROMBOSIS IN DEVICE [None]
  - NEUROMYOPATHY [None]
  - SHOCK [None]
